FAERS Safety Report 5888128-0 (Version None)
Quarter: 2008Q3

REPORT INFORMATION
  Report Type: 
  Country: None (occurrence: None)
  Receive Date: 20080916
  Receipt Date: 20080916
  Transmission Date: 20090109
  Serious: Yes (Hospitalization)
  Sender: FDA-Public Use
  Company Number: None

PATIENT
  Age: 24 Year
  Sex: Female
  Weight: 68.0396 kg

DRUGS (1)
  1. LOESTINE 24 [Suspect]
     Indication: MENORRHAGIA
     Dosage: TWICE A DAY
     Dates: start: 20080724, end: 20080811

REACTIONS (6)
  - ABASIA [None]
  - APHASIA [None]
  - ASTHENIA [None]
  - CONVULSION [None]
  - DIZZINESS [None]
  - HEADACHE [None]
